FAERS Safety Report 7124221-2 (Version None)
Quarter: 2010Q4

REPORT INFORMATION
  Report Type: 
  Country: None (occurrence: None)
  Receive Date: 20101126
  Receipt Date: 20101111
  Transmission Date: 20110411
  Serious: Yes (Hospitalization)
  Sender: FDA-Public Use
  Company Number: GXKR2010SI12762

PATIENT
  Sex: Female

DRUGS (2)
  1. OSPAMOX (NGX) [Suspect]
     Indication: ACUTE TONSILLITIS
     Dosage: 1000 MG, TID
     Route: 048
     Dates: end: 20101024
  2. PARACETAMOL [Concomitant]
     Dosage: 500 MG, TID
     Route: 048

REACTIONS (1)
  - DIARRHOEA HAEMORRHAGIC [None]
